FAERS Safety Report 4387780-9 (Version None)
Quarter: 2004Q2

REPORT INFORMATION
  Report Type: 
  Country: None (occurrence: None)
  Receive Date: 20040630
  Receipt Date: 20031001
  Transmission Date: 20050107
  Serious: Yes (Hospitalization, Other)
  Sender: FDA-Public Use
  Company Number: US-GLAXOSMITHKLINE-A0429108A

PATIENT
  Age: 24 Year
  Sex: Female

DRUGS (2)
  1. LOTRONEX [Suspect]
     Dates: start: 20000101, end: 20000801
  2. PROTONIX [Concomitant]
     Dosage: 40MG PER DAY

REACTIONS (9)
  - ABDOMINAL PAIN [None]
  - CLOSTRIDIAL INFECTION [None]
  - CONSTIPATION [None]
  - DEHYDRATION [None]
  - HEADACHE [None]
  - STOOLS WATERY [None]
  - SYNCOPE [None]
  - TACHYCARDIA [None]
  - WHITE BLOOD CELL COUNT INCREASED [None]
